FAERS Safety Report 10189440 (Version 1)
Quarter: 2014Q2

REPORT INFORMATION
  Report Type: Spontaneous
  Country: FR (occurrence: FR)
  Receive Date: 20140522
  Receipt Date: 20140522
  Transmission Date: 20141212
  Serious: Yes (Death, Other)
  Sender: FDA-Public Use
  Company Number: FR-TEVA-482377ISR

PATIENT
  Age: 67 Year
  Sex: Female

DRUGS (3)
  1. CARBOPLATINE TEVA [Suspect]
     Indication: LUNG NEOPLASM MALIGNANT
     Dosage: 328 MILLIGRAM DAILY;
     Route: 042
     Dates: start: 20140214, end: 20140214
  2. ALIMTA [Suspect]
     Indication: LUNG NEOPLASM MALIGNANT
     Dosage: 500 MG/M2 DAILY;
     Route: 042
     Dates: start: 20140214, end: 20140214
  3. AVASTIN [Suspect]
     Indication: LUNG NEOPLASM MALIGNANT
     Route: 042
     Dates: start: 20140214, end: 20140214

REACTIONS (15)
  - Bone marrow failure [Fatal]
  - Pyrexia [Fatal]
  - Haemorrhage [Fatal]
  - Infection [Fatal]
  - Acute respiratory failure [Unknown]
  - Anuria [Unknown]
  - Hyperkalaemia [Unknown]
  - Acute pulmonary oedema [Unknown]
  - Respiratory distress [Unknown]
  - Mucosal inflammation [Unknown]
  - Haemoptysis [Unknown]
  - Renal failure [Unknown]
  - Skin lesion [Unknown]
  - Vomiting [Unknown]
  - Dehydration [Unknown]
